FAERS Safety Report 25914271 (Version 1)
Quarter: 2025Q4

REPORT INFORMATION
  Report Type: Spontaneous
  Country: EU (occurrence: EU)
  Receive Date: 20251013
  Receipt Date: 20251013
  Transmission Date: 20260118
  Serious: Yes (Life-Threatening)
  Sender: TAKEDA
  Company Number: EU-TAKEDA-2025TUS089025

PATIENT
  Sex: Female

DRUGS (16)
  1. HUMAN IMMUNOGLOBULIN G [Suspect]
     Active Substance: HUMAN IMMUNOGLOBULIN G
     Indication: Septic shock
     Dosage: 2.5 GRAM
  2. ALBUMIN HUMAN [Suspect]
     Active Substance: ALBUMIN HUMAN
     Indication: Septic shock
     Dosage: 10 MILLILITER
  3. HYDROCORTISONE [Suspect]
     Active Substance: HYDROCORTISONE
     Indication: Septic shock
     Dosage: 2 MILLIGRAM/KILOGRAM, Q8HR
  4. ACETAMINOPHEN [Suspect]
     Active Substance: ACETAMINOPHEN
     Indication: Septic shock
     Dosage: 25 MILLIGRAM
  5. MORPHINE [Suspect]
     Active Substance: MORPHINE
     Indication: Septic shock
     Dosage: .1 MILLIGRAM
  6. ACYCLOVIR [Suspect]
     Active Substance: ACYCLOVIR
     Indication: Septic shock
     Dosage: 40 MILLIGRAM, Q8HR
  7. VANCOMYCIN [Suspect]
     Active Substance: VANCOMYCIN
     Indication: Septic shock
     Dosage: 30 MILLIGRAM, Q8HR
  8. MEROPENEM [Suspect]
     Active Substance: MEROPENEM
     Indication: Septic shock
     Dosage: 80 MILLIGRAM, Q8HR
  9. AMIKACIN [Suspect]
     Active Substance: AMIKACIN
     Indication: Septic shock
     Dosage: 25 MILLIGRAM, Q6HR
  10. FLUCONAZOLE [Suspect]
     Active Substance: FLUCONAZOLE
     Indication: Septic shock
     Dosage: 12 MILLIGRAM, Q3HR
  11. DOPAMINE [Suspect]
     Active Substance: DOPAMINE HYDROCHLORIDE
     Indication: Septic shock
     Dosage: UNK
  12. NOREPINEPHRINE [Suspect]
     Active Substance: NOREPINEPHRINE
     Indication: Septic shock
     Dosage: UNK
  13. PHENOBARBITAL [Suspect]
     Active Substance: PHENOBARBITAL
     Indication: Septic shock
     Dosage: 6 MILLIGRAM
  14. KETAMINE [Suspect]
     Active Substance: KETAMINE
     Indication: Septic shock
     Dosage: UNK
  15. NOREPINEPHRINE BITARTRATE [Suspect]
     Active Substance: NOREPINEPHRINE BITARTRATE
     Indication: Septic shock
     Dosage: UNK
  16. MANNITOL [Suspect]
     Active Substance: MANNITOL
     Indication: Septic shock
     Dosage: 1 GRAM

REACTIONS (1)
  - Therapy non-responder [Unknown]
